FAERS Safety Report 8273125-0 (Version None)
Quarter: 2012Q2

REPORT INFORMATION
  Report Type: 
  Country: None (occurrence: None)
  Receive Date: 20120411
  Receipt Date: 20120403
  Transmission Date: 20120825
  Serious: Yes (Other)
  Sender: FDA-Public Use
  Company Number: GB-JNJFOC-20120403311

PATIENT

DRUGS (32)
  1. BLEOMYCIN SULFATE [Suspect]
     Route: 042
  2. VINCRISTINE [Suspect]
     Route: 042
  3. VINCRISTINE [Suspect]
     Route: 042
  4. PROCARBAZINE HYDROCHLORIDE [Suspect]
     Route: 048
  5. DOXORUBICIN HCL [Suspect]
     Route: 042
  6. DACARBAZINE [Suspect]
     Route: 042
  7. CHLORAMBUCIL [Suspect]
     Indication: HODGKIN'S DISEASE
     Route: 048
  8. BLEOMYCIN SULFATE [Suspect]
     Route: 042
  9. VINBLASTINE SULFATE [Suspect]
     Route: 042
  10. PROCARBAZINE HYDROCHLORIDE [Suspect]
     Indication: HODGKIN'S DISEASE
     Route: 048
  11. PREDNISOLONE [Suspect]
     Indication: HODGKIN'S DISEASE
     Route: 048
  12. PREDNISOLONE [Suspect]
     Route: 048
  13. BLEOMYCIN SULFATE [Suspect]
     Indication: HODGKIN'S DISEASE
     Route: 042
  14. VINCRISTINE [Suspect]
     Route: 042
  15. DACARBAZINE [Suspect]
     Indication: HODGKIN'S DISEASE
     Route: 042
  16. PREDNISOLONE [Suspect]
     Route: 048
  17. BLEOMYCIN SULFATE [Suspect]
     Route: 042
  18. CHLORAMBUCIL [Suspect]
     Route: 048
  19. DOXORUBICIN HCL [Suspect]
     Indication: HODGKIN'S DISEASE
     Route: 042
  20. DOXORUBICIN HCL [Suspect]
     Route: 042
  21. VINCRISTINE [Suspect]
     Indication: HODGKIN'S DISEASE
     Route: 042
  22. DACARBAZINE [Suspect]
     Route: 042
  23. VINBLASTINE SULFATE [Suspect]
     Indication: HODGKIN'S DISEASE
     Route: 042
  24. VINBLASTINE SULFATE [Suspect]
     Route: 042
  25. VINBLASTINE SULFATE [Suspect]
     Route: 042
  26. PROCARBAZINE HYDROCHLORIDE [Suspect]
     Route: 048
  27. PROCARBAZINE HYDROCHLORIDE [Suspect]
     Route: 048
  28. DOXORUBICIN HCL [Suspect]
     Route: 042
  29. DACARBAZINE [Suspect]
     Route: 042
  30. CHLORAMBUCIL [Suspect]
     Route: 048
  31. PREDNISOLONE [Suspect]
     Route: 048
  32. CHLORAMBUCIL [Suspect]
     Route: 048

REACTIONS (1)
  - LYMPHOPROLIFERATIVE DISORDER [None]
